FAERS Safety Report 9460150 (Version 1)
Quarter: 2013Q3

REPORT INFORMATION
  Report Type: Spontaneous
  Country: US (occurrence: US)
  Receive Date: 20130815
  Receipt Date: 20130815
  Transmission Date: 20140515
  Serious: No
  Sender: FDA-Public Use
  Company Number: US-009507513-1308USA004190

PATIENT
  Sex: Male
  Weight: 68.27 kg

DRUGS (5)
  1. VICTRELIS [Suspect]
     Dosage: 800 MG (4 CAPSULES) THREE TIMES A DAY (EVERY 7-9 HOURS)
  2. PEGASYS [Suspect]
  3. REBETOL [Suspect]
     Route: 048
  4. NEUPOGEN [Concomitant]
  5. SPIRONOLACT [Concomitant]

REACTIONS (1)
  - White blood cell count decreased [Unknown]
